FAERS Safety Report 4442444-8 (Version None)
Quarter: 2004Q3

REPORT INFORMATION
  Report Type: 
  Country: None (occurrence: None)
  Receive Date: 20040903
  Receipt Date: 20040727
  Transmission Date: 20050211
  Serious: Yes (Other)
  Sender: FDA-Public Use
  Company Number: 2004UW16189

PATIENT
  Sex: Male

DRUGS (1)
  1. CRESTOR [Suspect]
     Dosage: 20 MG PO
     Route: 048

REACTIONS (4)
  - HAEMOGLOBINURIA [None]
  - MYALGIA [None]
  - MYOSITIS [None]
  - PYREXIA [None]
